FAERS Safety Report 4932040-8 (Version None)
Quarter: 2006Q1

REPORT INFORMATION
  Report Type: 
  Country: None (occurrence: None)
  Receive Date: 20060303
  Receipt Date: 20060209
  Transmission Date: 20060701
  Serious: Yes (Hospitalization)
  Sender: FDA-Public Use
  Company Number: JP-AVENTIS-200610487JP

PATIENT
  Age: 68 Year
  Sex: Male

DRUGS (5)
  1. LANTUS [Suspect]
     Indication: DIABETES MELLITUS NON-INSULIN-DEPENDENT
     Route: 058
  2. NOVORAPID [Suspect]
  3. HUMALOG [Suspect]
  4. NOVOLIN R [Suspect]
  5. NOVOLIN 30R [Suspect]

REACTIONS (1)
  - TYPE I HYPERSENSITIVITY [None]
